FAERS Safety Report 10071091 (Version 1)
Quarter: 2014Q2

REPORT INFORMATION
  Report Type: Spontaneous
  Country: GB (occurrence: GB)
  Receive Date: 20140410
  Receipt Date: 20140410
  Transmission Date: 20141212
  Serious: Yes (Life-Threatening, Hospitalization)
  Sender: FDA-Public Use
  Company Number: GB-TEVA-472442ISR

PATIENT
  Age: 40 Year
  Sex: Male

DRUGS (5)
  1. OLANZAPINE [Suspect]
     Indication: ANXIETY
     Route: 048
     Dates: start: 20140227, end: 20140306
  2. IBUPROFEN [Concomitant]
     Indication: PAIN
     Dosage: 1200MG/24HOUR. AS NEEDED. FOR NIGHT SEDATION
     Route: 048
     Dates: start: 20140225, end: 20140306
  3. TRAZODONE [Concomitant]
     Indication: ANXIETY
     Dosage: 300 MILLIGRAM DAILY; ONGOING
     Route: 048
     Dates: start: 201312
  4. PARACETAMOL [Concomitant]
     Indication: PAIN
     Dosage: 4G/24HOURS
     Route: 048
     Dates: start: 20140225, end: 20140306
  5. LORAZEPAM [Concomitant]
     Indication: SEDATION
     Dosage: 4 MILLIGRAM DAILY;
     Route: 048
     Dates: start: 20140306

REACTIONS (2)
  - Liver function test abnormal [Recovering/Resolving]
  - Hepatotoxicity [Recovering/Resolving]
